FAERS Safety Report 6314371-2 (Version None)
Quarter: 2009Q3

REPORT INFORMATION
  Report Type: 
  Country: None (occurrence: None)
  Receive Date: 20090819
  Receipt Date: 20090807
  Transmission Date: 20100115
  Serious: Yes (Hospitalization)
  Sender: FDA-Public Use
  Company Number: US-ABBOTT-09P-163-0590045-00

PATIENT
  Sex: Male
  Weight: 77.18 kg

DRUGS (16)
  1. HUMIRA [Suspect]
     Indication: COLITIS ULCERATIVE
     Dates: start: 20080901, end: 20090301
  2. CARAFATE [Concomitant]
     Indication: DRUG USE FOR UNKNOWN INDICATION
  3. HYDROXYZINE [Concomitant]
     Indication: DRUG USE FOR UNKNOWN INDICATION
  4. COMBIVENT [Concomitant]
     Indication: DRUG USE FOR UNKNOWN INDICATION
  5. NORVASC [Concomitant]
     Indication: DRUG USE FOR UNKNOWN INDICATION
  6. ZYRTEC [Concomitant]
     Indication: DRUG USE FOR UNKNOWN INDICATION
  7. METFORMIN [Concomitant]
     Indication: DRUG USE FOR UNKNOWN INDICATION
  8. VIT [Concomitant]
     Indication: DRUG USE FOR UNKNOWN INDICATION
  9. PYRIDOXINE HCL [Concomitant]
     Indication: DRUG USE FOR UNKNOWN INDICATION
  10. SERTRALINE [Concomitant]
     Indication: DRUG USE FOR UNKNOWN INDICATION
  11. PEPCID [Concomitant]
     Indication: DRUG USE FOR UNKNOWN INDICATION
  12. SINGULAIR [Concomitant]
     Indication: DRUG USE FOR UNKNOWN INDICATION
  13. PREDNISONE TAB [Concomitant]
     Indication: DRUG USE FOR UNKNOWN INDICATION
  14. NASAL SPRAY ATNIS [Concomitant]
     Indication: DRUG USE FOR UNKNOWN INDICATION
  15. XOPENEX [Concomitant]
     Indication: DRUG USE FOR UNKNOWN INDICATION
  16. ASACOL [Concomitant]
     Indication: DRUG USE FOR UNKNOWN INDICATION

REACTIONS (7)
  - ANAPHYLACTIC REACTION [None]
  - COLLAPSE OF LUNG [None]
  - CROHN'S DISEASE [None]
  - RASH [None]
  - RECTAL HAEMORRHAGE [None]
  - UPPER RESPIRATORY TRACT INFECTION [None]
  - URTICARIA [None]
